FAERS Safety Report 7945094-1 (Version None)
Quarter: 2011Q4

REPORT INFORMATION
  Report Type: 
  Country: None (occurrence: None)
  Receive Date: 20111122
  Receipt Date: 20111109
  Transmission Date: 20120403
  Serious: Yes (Life-Threatening)
  Sender: FDA-Public Use
  Company Number: DE-1188635

PATIENT
  Age: 33 Year
  Sex: Female

DRUGS (1)
  1. CYCLOPENTOLATE HCL [Suspect]
     Indication: OPHTHALMOLOGICAL EXAMINATION
     Dosage: (1 GTT 1X/10 MINUTES OU OPHTHALMIC)
     Route: 047
     Dates: start: 20111017, end: 20111017

REACTIONS (6)
  - VOMITING [None]
  - CIRCULATORY COLLAPSE [None]
  - HYPOTENSION [None]
  - DIZZINESS [None]
  - NAUSEA [None]
  - NO REACTION ON PREVIOUS EXPOSURE TO DRUG [None]
